FAERS Safety Report 9482270 (Version 3)
Quarter: 2013Q3

REPORT INFORMATION
  Report Type: Report from Study
  Country: US (occurrence: US)
  Receive Date: 20130828
  Receipt Date: 20130919
  Transmission Date: 20140515
  Serious: Yes (Hospitalization)
  Sender: FDA-Public Use
  Company Number: US-CELGENEUS-163-21880-13082552

PATIENT
  Age: 65 Year
  Sex: Female
  Weight: 73.3 kg

DRUGS (6)
  1. REVLIMID [Suspect]
     Indication: ACUTE MYELOID LEUKAEMIA
     Dosage: 20 MILLIGRAM
     Route: 048
     Dates: start: 20130711, end: 20130731
  2. IDARUBICIN [Suspect]
     Indication: ACUTE MYELOID LEUKAEMIA
     Dosage: 12 MILLIGRAM/SQ. METER
     Route: 065
     Dates: start: 20130711, end: 20130731
  3. CYTARABINE [Suspect]
     Indication: ACUTE MYELOID LEUKAEMIA
     Dosage: 200 MILLIGRAM/SQ. METER
     Route: 065
     Dates: start: 20130711, end: 20130731
  4. ZOSYN [Concomitant]
     Indication: URINARY TRACT INFECTION
     Dosage: 13.5 GRAM
     Route: 041
     Dates: start: 20130817
  5. ANTIBIOTICS [Concomitant]
     Indication: PRODUCT USED FOR UNKNOWN INDICATION
     Route: 065
  6. CIPRO [Concomitant]
     Indication: URINARY TRACT INFECTION
     Dosage: 1000 MILLIGRAM
     Route: 041
     Dates: start: 20130820, end: 20130828

REACTIONS (1)
  - Mental status changes [Recovered/Resolved]
